FAERS Safety Report 20810491 (Version 4)
Quarter: 2022Q2

REPORT INFORMATION
  Report Type: Spontaneous
  Country: FR (occurrence: FR)
  Receive Date: 20220510
  Receipt Date: 20220628
  Transmission Date: 20220720
  Serious: Yes (Death, Hospitalization)
  Sender: FDA-Public Use
  Company Number: FR-PFIZER INC-202200660906

PATIENT
  Age: 89 Year
  Sex: Female
  Weight: 60 kg

DRUGS (1)
  1. PAXLOVID [Suspect]
     Active Substance: NIRMATRELVIR\RITONAVIR
     Indication: COVID-19 treatment
     Dosage: [PF-07321332 300MG] / [RITONAVIR 100MG] 2X/DAY
     Route: 048
     Dates: start: 20220329

REACTIONS (4)
  - Pneumonia pseudomonal [Fatal]
  - Drug ineffective [Fatal]
  - COVID-19 [Fatal]
  - Death [Fatal]

NARRATIVE: CASE EVENT DATE: 20220418
